FAERS Safety Report 13022853 (Version 4)
Quarter: 2017Q1

REPORT INFORMATION
  Report Type: Spontaneous
  Country: BR (occurrence: BR)
  Receive Date: 20161213
  Receipt Date: 20170322
  Transmission Date: 20170428
  Serious: Yes (Hospitalization, Other)
  Sender: FDA-Public Use
  Company Number: BR-GLAXOSMITHKLINE-BR2016GSK025587

PATIENT
  Sex: Female
  Weight: 71 kg

DRUGS (7)
  1. BENLYSTA [Suspect]
     Active Substance: BELIMUMAB
     Dosage: UNK
     Dates: start: 20161101
  2. CERAZETTE (DESOGESTREL) [Concomitant]
     Indication: CONTRACEPTION
     Dosage: UNK
  3. BENLYSTA [Suspect]
     Active Substance: BELIMUMAB
     Indication: SYSTEMIC LUPUS ERYTHEMATOSUS
     Dosage: UNK
     Dates: start: 20150828
  4. BENLYSTA [Suspect]
     Active Substance: BELIMUMAB
     Dosage: UNK
     Dates: start: 20160511
  5. BENLYSTA [Suspect]
     Active Substance: BELIMUMAB
     Dosage: UNK
     Dates: start: 20161222
  6. BENLYSTA [Suspect]
     Active Substance: BELIMUMAB
     Dosage: UNK
     Dates: start: 20170216
  7. BENLYSTA [Suspect]
     Active Substance: BELIMUMAB
     Dosage: UNK
     Dates: start: 20160315

REACTIONS (15)
  - Menstrual disorder [Unknown]
  - Drug dose omission [Unknown]
  - Exposure during breast feeding [Unknown]
  - Live birth [Unknown]
  - Laryngeal oedema [Unknown]
  - Pericardial effusion [Unknown]
  - Premature baby [Recovering/Resolving]
  - Exposure during pregnancy [Not Recovered/Not Resolved]
  - Hypersensitivity [Unknown]
  - Pleural effusion [Unknown]
  - Bacterial test positive [Unknown]
  - Drug administration error [Unknown]
  - Investigation abnormal [Unknown]
  - Malaise [Unknown]
  - Inappropriate schedule of drug administration [Recovered/Resolved]
